FAERS Safety Report 6771381-9 (Version None)
Quarter: 2010Q2

REPORT INFORMATION
  Report Type: 
  Country: None (occurrence: None)
  Receive Date: 20100520
  Receipt Date: 20090310
  Transmission Date: 20101027
  Serious: Yes (Other)
  Sender: FDA-Public Use
  Company Number: 2009184243

PATIENT
  Age: 61 Year
  Weight: 57 kg

DRUGS (8)
  1. PROVERA [Suspect]
     Indication: CARDIOVASCULAR DISORDER
     Dosage: 2.5 MG
     Dates: start: 20000101, end: 20020101
  2. PROVERA [Suspect]
     Indication: MENOPAUSE
     Dosage: 2.5 MG
     Dates: start: 20000101, end: 20020101
  3. PROVERA [Suspect]
     Indication: OSTEOPOROSIS PROPHYLAXIS
     Dosage: 2.5 MG
     Dates: start: 20000101, end: 20020101
  4. MEDROXYPROGESTERONE ACETATE [Suspect]
     Indication: CARDIOVASCULAR DISORDER
     Dosage: 2.5 MG
     Dates: start: 19930101, end: 19990101
  5. MEDROXYPROGESTERONE ACETATE [Suspect]
     Indication: MENOPAUSE
     Dosage: 2.5 MG
     Dates: start: 19930101, end: 19990101
  6. MEDROXYPROGESTERONE ACETATE [Suspect]
     Indication: OSTEOPOROSIS PROPHYLAXIS
     Dosage: 2.5 MG
     Dates: start: 19930101, end: 19990101
  7. PREMARIN [Suspect]
     Indication: MENOPAUSE
     Dosage: 0.625 MG
     Dates: start: 19930101, end: 20020101
  8. PREMARIN [Suspect]
     Indication: OSTEOPOROSIS PROPHYLAXIS
     Dosage: 0.625 MG
     Dates: start: 19930101, end: 20020101

REACTIONS (1)
  - BREAST CANCER FEMALE [None]
